FAERS Safety Report 9495852 (Version 4)
Quarter: 2014Q3

REPORT INFORMATION
  Report Type: Report from Study
  Country: ZA (occurrence: ZA)
  Receive Date: 20130903
  Receipt Date: 20140707
  Transmission Date: 20150326
  Serious: Yes (Life-Threatening, Hospitalization)
  Sender: FDA-Public Use
  Company Number: ZA-PFIZER INC-2013245303

PATIENT
  Age: 79 Year
  Sex: Female

DRUGS (10)
  1. CALCIUM CARBONATE. [Concomitant]
     Active Substance: CALCIUM CARBONATE
     Indication: OSTEOPOROSIS
     Dosage: 1500 ML (500 ML,3 IN 1 D)
     Dates: start: 20050602
  2. METHOTREXATE [Suspect]
     Active Substance: METHOTREXATE
     Indication: RHEUMATOID ARTHRITIS
     Dosage: 30 MG, 2X/WEEK
     Route: 048
     Dates: start: 20111128
  3. SPECTRAPAIN [Concomitant]
     Dosage: 500 MG,3 IN 1 D
     Route: 048
     Dates: start: 20050602
  4. PERINDOPRIL [Concomitant]
     Active Substance: PERINDOPRIL
     Indication: HYPERTENSION
     Dosage: 6 MG (6 MG,1 IN 1 D)
     Route: 048
     Dates: start: 20111128
  5. CALCIFEROL [Concomitant]
     Active Substance: ERGOCALCIFEROL
     Indication: OSTEOPOROSIS
     Dosage: DOSE: 5000 UNITS. (1 IN 1 WK)
     Route: 048
     Dates: start: 20050602
  6. ETANERCEPT [Suspect]
     Active Substance: ETANERCEPT
     Indication: RHEUMATOID ARTHRITIS
     Dosage: 50 MG, WEEKLY (RECENT DOSE PRIOR TO SAE: 05/JUL/2012)
     Route: 058
     Dates: start: 20120621
  7. ACLASTA [Concomitant]
     Active Substance: ZOLEDRONIC ACID
     Indication: OSTEOPOROSIS
     Dosage: UNK
  8. COLECALCIFEROL [Concomitant]
     Active Substance: CHOLECALCIFEROL
     Indication: OSTEOPOROSIS
     Dosage: DOSE: 5000 UNITS. (1 IN 1 WK)
     Route: 048
     Dates: start: 20050602
  9. FOLATE [Concomitant]
     Active Substance: FOLATE SODIUM
     Indication: RHEUMATOID ARTHRITIS
     Dosage: 5 MG (5 MG,1 IN 1 D)
     Route: 048
     Dates: start: 20050401
  10. CHLOROQUINE [Concomitant]
     Active Substance: CHLOROQUINE\CHLOROQUINE PHOSPHATE
     Indication: RHEUMATOID ARTHRITIS
     Dosage: 200 MG (200 MG,1 IN 1 D)
     Route: 048
     Dates: start: 20050401

REACTIONS (2)
  - Melaena [Recovered/Resolved]
  - Pancytopenia [Recovered/Resolved]

NARRATIVE: CASE EVENT DATE: 20120710
